FAERS Safety Report 10219621 (Version 2)
Quarter: 2014Q2

REPORT INFORMATION
  Report Type: Spontaneous
  Country: DE (occurrence: DE)
  Receive Date: 20140605
  Receipt Date: 20140606
  Transmission Date: 20141212
  Serious: Yes (Other)
  Sender: FDA-Public Use
  Company Number: DE-GLAXOSMITHKLINE-D0084163A

PATIENT
  Sex: Female

DRUGS (1)
  1. TAFINLAR [Suspect]
     Indication: MALIGNANT MELANOMA STAGE IV
     Route: 048
     Dates: start: 201402

REACTIONS (3)
  - Autoimmune thyroiditis [Unknown]
  - Thyroid function test abnormal [Unknown]
  - Metastases to central nervous system [Unknown]
